FAERS Safety Report 22223854 (Version 2)
Quarter: 2024Q3

REPORT INFORMATION
  Report Type: Spontaneous
  Country: US (occurrence: US)
  Receive Date: 20230418
  Receipt Date: 20240728
  Transmission Date: 20241017
  Serious: No
  Sender: SUNOVION
  Company Number: US-UROVANT SCIENCES GMBH-202301-URV-000034

PATIENT
  Age: 91 Year
  Sex: Female

DRUGS (3)
  1. GEMTESA [Suspect]
     Active Substance: VIBEGRON
     Dosage: 75 MG, QD
     Route: 065
     Dates: start: 20221215, end: 202301
  2. GEMTESA [Suspect]
     Active Substance: VIBEGRON
     Indication: Nocturia
  3. GEMTESA [Suspect]
     Active Substance: VIBEGRON
     Indication: Urge incontinence

REACTIONS (2)
  - Migraine [Not Recovered/Not Resolved]
  - Vertigo [Not Recovered/Not Resolved]

NARRATIVE: CASE EVENT DATE: 20230101
